FAERS Safety Report 10758748 (Version 1)
Quarter: 2015Q1

REPORT INFORMATION
  Report Type: Spontaneous
  Country: US (occurrence: None)
  Receive Date: 20150202
  Receipt Date: 20150202
  Transmission Date: 20150721
  Serious: Yes (Disabling)
  Sender: FDA-Public Use
  Company Number: None

PATIENT
  Age: 49 Year
  Sex: Female
  Weight: 53.98 kg

DRUGS (1)
  1. NESINA [Suspect]
     Active Substance: ALOGLIPTIN BENZOATE
     Indication: TYPE 2 DIABETES MELLITUS
     Route: 048
     Dates: start: 20150121, end: 20150125

REACTIONS (19)
  - Dysphonia [None]
  - Headache [None]
  - Sinusitis [None]
  - Chills [None]
  - Dysphagia [None]
  - Constipation [None]
  - Lymphadenopathy [None]
  - Sneezing [None]
  - Muscle spasms [None]
  - Vision blurred [None]
  - Cough [None]
  - Ear pain [None]
  - Nausea [None]
  - Sinus congestion [None]
  - Respiratory tract infection [None]
  - Nasal congestion [None]
  - Cold sweat [None]
  - Pruritus [None]
  - Dysarthria [None]

NARRATIVE: CASE EVENT DATE: 20150125
